FAERS Safety Report 19092319 (Version 1)
Quarter: 2021Q2

REPORT INFORMATION
  Report Type: Spontaneous
  Country: US (occurrence: US)
  Receive Date: 20210405
  Receipt Date: 20210405
  Transmission Date: 20210717
  Serious: Yes (Hospitalization, Other)
  Sender: FDA-Public Use
  Company Number: US-SA-2021SA110666

PATIENT
  Age: 69 Year
  Sex: Female

DRUGS (1)
  1. DUPIXENT [Suspect]
     Active Substance: DUPILUMAB
     Indication: DERMATITIS ATOPIC
     Dosage: 300 MG, Q15D
     Route: 058
     Dates: start: 20200825

REACTIONS (4)
  - Myocardial infarction [Unknown]
  - Off label use [Unknown]
  - Gout [Unknown]
  - Product use issue [Unknown]

NARRATIVE: CASE EVENT DATE: 20200825
